FAERS Safety Report 8999436 (Version 2)
Quarter: 2013Q1

REPORT INFORMATION
  Report Type: Spontaneous
  Country: IN (occurrence: IN)
  Receive Date: 20130103
  Receipt Date: 20130115
  Transmission Date: 20140127
  Serious: Yes (Death)
  Sender: FDA-Public Use
  Company Number: IN-BRISTOL-MYERS SQUIBB COMPANY-17251299

PATIENT
  Age: 62 Year
  Sex: Female

DRUGS (1)
  1. BARACLUDE TABS 0.5 MG [Suspect]
     Dates: start: 20111001, end: 20120314

REACTIONS (2)
  - Renal failure [Fatal]
  - Hepatic function abnormal [Fatal]
